FAERS Safety Report 8035574-5 (Version None)
Quarter: 2012Q1

REPORT INFORMATION
  Report Type: 
  Country: None (occurrence: None)
  Receive Date: 20120111
  Receipt Date: 20120105
  Transmission Date: 20120608
  Serious: Yes (Hospitalization, Other)
  Sender: FDA-Public Use
  Company Number: US-JNJFOC-20110408235

PATIENT
  Sex: Female

DRUGS (5)
  1. LEVAQUIN [Suspect]
     Indication: PRODUCT USED FOR UNKNOWN INDICATION
     Route: 065
  2. VANCOMYCIN [Suspect]
     Indication: INFECTION
     Route: 042
  3. LEVAQUIN [Suspect]
     Indication: RASH
     Route: 042
     Dates: start: 20080101
  4. LEVAQUIN [Suspect]
     Indication: STAPHYLOCOCCAL INFECTION
     Route: 065
  5. ROCEPHIN [Suspect]
     Indication: INFECTION
     Route: 042

REACTIONS (4)
  - STEVENS-JOHNSON SYNDROME [None]
  - ERYTHEMA MULTIFORME [None]
  - TOXIC SHOCK SYNDROME [None]
  - ABASIA [None]
